FAERS Safety Report 18027723 (Version 3)
Quarter: 2020Q3

REPORT INFORMATION
  Report Type: Spontaneous
  Country: EG (occurrence: EG)
  Receive Date: 20200716
  Receipt Date: 20200807
  Transmission Date: 20201103
  Serious: Yes (Other)
  Sender: FDA-Public Use
  Company Number: EG-REGENERON PHARMACEUTICALS, INC.-2020-49809

PATIENT

DRUGS (2)
  1. NORVASC [Concomitant]
     Active Substance: AMLODIPINE BESYLATE
     Indication: HYPERTENSION
     Dosage: 1 TABLET, QD
  2. EYLEA [Suspect]
     Active Substance: AFLIBERCEPT
     Indication: RETINAL OEDEMA
     Dosage: THE PATIENT RECEIVED ABOUT 3 EYLEA INJECTIONS (2 RIGHT AND 1 LEFT). THE LAST INJECTION WAS ON 9?SEP?
     Route: 031
     Dates: start: 2019, end: 20190909

REACTIONS (5)
  - Retinal fibrosis [Not Recovered/Not Resolved]
  - Cataract operation [Unknown]
  - Drug ineffective for unapproved indication [Unknown]
  - Off label use [Unknown]
  - Visual impairment [Not Recovered/Not Resolved]

NARRATIVE: CASE EVENT DATE: 2019
